FAERS Safety Report 6720678-7 (Version None)
Quarter: 2010Q2

REPORT INFORMATION
  Report Type: 
  Country: None (occurrence: None)
  Receive Date: 20100510
  Receipt Date: 20100503
  Transmission Date: 20101027
  Serious: Yes (Death)
  Sender: FDA-Public Use
  Company Number: 20108065

PATIENT
  Age: 69 Year
  Sex: Male

DRUGS (1)
  1. LIORESAL [Suspect]
     Indication: MUSCLE SPASTICITY
     Dosage: 2500 MCG, DAILY, INTRATHECAL
     Route: 037

REACTIONS (5)
  - DEVICE MALFUNCTION [None]
  - HYPERTONIA [None]
  - INJURY [None]
  - MALAISE [None]
  - WITHDRAWAL SYNDROME [None]
